FAERS Safety Report 7712925-X (Version None)
Quarter: 2011Q3

REPORT INFORMATION
  Report Type: 
  Country: None (occurrence: None)
  Receive Date: 20110826
  Receipt Date: 20110816
  Transmission Date: 20111222
  Serious: Yes (Hospitalization, Other)
  Sender: FDA-Public Use
  Company Number: PHEH2005US04361

PATIENT
  Sex: Female
  Weight: 70.748 kg

DRUGS (13)
  1. MEDROXYPROGESTERONE ACETATE [Suspect]
     Indication: MENOPAUSAL SYMPTOMS
     Dates: start: 20030123, end: 20031023
  2. LASIX [Concomitant]
     Dosage: 40 MG, UNK
  3. PREMARIN [Suspect]
     Indication: MENOPAUSAL SYMPTOMS
     Route: 061
     Dates: start: 20000801, end: 20021001
  4. PREMPRO [Suspect]
     Indication: MENOPAUSAL SYMPTOMS
     Dosage: 0.625 MG, UNK
     Route: 048
     Dates: start: 19970611, end: 20021111
  5. FUROSEMIDE [Concomitant]
  6. PROVERA [Suspect]
     Indication: MENOPAUSAL SYMPTOMS
     Route: 048
     Dates: start: 19881014, end: 19960318
  7. DIAZEPAM [Concomitant]
  8. ESTRADERM [Suspect]
     Indication: MENOPAUSAL SYMPTOMS
     Dosage: 0.1 MG,
     Route: 062
     Dates: start: 19921001, end: 19950901
  9. PREMARIN [Suspect]
     Indication: MENOPAUSAL SYMPTOMS
     Route: 048
     Dates: start: 19881014, end: 20031020
  10. PROZAC [Concomitant]
     Dosage: 20 MG, UNK
  11. VALIUM [Concomitant]
  12. FLUOXETINE [Concomitant]
  13. EFFEXOR [Concomitant]
     Dosage: 75 MG, UNK

REACTIONS (20)
  - HILAR LYMPHADENOPATHY [None]
  - CHEST PAIN [None]
  - DEPRESSION [None]
  - UTERINE LEIOMYOMA [None]
  - ARTHRALGIA [None]
  - METASTATIC NEOPLASM [None]
  - COUGH [None]
  - SELF ESTEEM DECREASED [None]
  - UPPER RESPIRATORY TRACT INFECTION [None]
  - DYSPNOEA EXERTIONAL [None]
  - BREAST CANCER [None]
  - HOT FLUSH [None]
  - WEIGHT INCREASED [None]
  - CONFUSIONAL STATE [None]
  - INSOMNIA [None]
  - LUNG ADENOCARCINOMA STAGE II [None]
  - MOOD SWINGS [None]
  - OSTEOARTHRITIS [None]
  - NON-SMALL CELL LUNG CANCER RECURRENT [None]
  - FATIGUE [None]
